FAERS Safety Report 17017223 (Version 1)
Quarter: 2019Q4

REPORT INFORMATION
  Report Type: Spontaneous
  Country: US (occurrence: US)
  Receive Date: 20191111
  Receipt Date: 20191111
  Transmission Date: 20200122
  Serious: Yes (Other)
  Sender: FDA-Public Use
  Company Number: US-ELI_LILLY_AND_COMPANY-US201911000354

PATIENT
  Sex: Male

DRUGS (2)
  1. LANTUS [Concomitant]
     Active Substance: INSULIN GLARGINE
     Indication: PRODUCT USED FOR UNKNOWN INDICATION
     Dosage: 80 U, UNKNOWN
  2. BASAGLAR [Suspect]
     Active Substance: INSULIN GLARGINE
     Indication: PRODUCT USED FOR UNKNOWN INDICATION
     Dosage: 120 U
     Route: 065

REACTIONS (4)
  - Pancreatic failure [Unknown]
  - Blood glucose increased [Unknown]
  - Drug ineffective [Unknown]
  - Starvation [Unknown]
